FAERS Safety Report 5390123-5 (Version None)
Quarter: 2007Q3

REPORT INFORMATION
  Report Type: 
  Country: None (occurrence: None)
  Receive Date: 20070718
  Receipt Date: 20070711
  Transmission Date: 20080115
  Serious: Yes (Congenital Anomaly)
  Sender: FDA-Public Use
  Company Number: D0053122B

PATIENT
  Sex: Male
  Weight: 2.8 kg

DRUGS (6)
  1. COMBIVIR [Suspect]
     Dosage: 900MG PER DAY
     Dates: start: 20050216
  2. EPIVIR [Suspect]
     Dosage: 300MG PER DAY
     Dates: start: 20040729, end: 20050216
  3. VIREAD [Suspect]
     Dosage: 300MG PER DAY
     Dates: start: 20040729
  4. NORVIR [Suspect]
     Dosage: 400MG PER DAY
     Dates: start: 20040729, end: 20050216
  5. FUZEON [Suspect]
     Dosage: 180MG PER DAY
     Dates: start: 20050322, end: 20050331
  6. INVIRASE [Suspect]
     Dosage: 2000MG PER DAY
     Dates: start: 20040929, end: 20050216

REACTIONS (1)
  - DIAPHRAGMATIC HERNIA [None]
